FAERS Safety Report 5765292-5 (Version None)
Quarter: 2008Q2

REPORT INFORMATION
  Report Type: 
  Country: None (occurrence: None)
  Receive Date: 20080611
  Receipt Date: 20080605
  Transmission Date: 20081010
  Serious: Yes (Death, Life-Threatening)
  Sender: FDA-Public Use
  Company Number: US-PURDUE-USA_2008_0033184

PATIENT
  Age: 19 Year
  Sex: Female

DRUGS (2)
  1. OXYCONTIN [Suspect]
     Indication: DRUG ABUSE
  2. OXYCODONE HCL [Suspect]
     Indication: DRUG ABUSE

REACTIONS (3)
  - ACCIDENTAL OVERDOSE [None]
  - COMA [None]
  - SUBSTANCE ABUSE [None]
